FAERS Safety Report 17859310 (Version 1)
Quarter: 2020Q2

REPORT INFORMATION
  Report Type: Spontaneous
  Country: US (occurrence: US)
  Receive Date: 20200603
  Receipt Date: 20200603
  Transmission Date: 20200714
  Serious: Yes (Other)
  Sender: FDA-Public Use
  Company Number: None

PATIENT
  Age: 59 Year
  Sex: Female
  Weight: 54 kg

DRUGS (4)
  1. CALCIUM WITH VITAMIN D WITH MINERALS [Concomitant]
  2. ENL WITH DELTA FOLATE [Concomitant]
  3. JORNAY PM EXTENDED-RELEASE [Suspect]
     Active Substance: METHYLPHENIDATE HYDROCHLORIDE
     Indication: ATTENTION DEFICIT HYPERACTIVITY DISORDER
     Dosage: ?          QUANTITY:3 CAPSULE(S);?
     Route: 048
     Dates: start: 20200517, end: 20200519
  4. FISH OIL [Concomitant]
     Active Substance: FISH OIL

REACTIONS (5)
  - Nervousness [None]
  - Skin discolouration [None]
  - Erythema [None]
  - Heart rate increased [None]
  - Angina pectoris [None]

NARRATIVE: CASE EVENT DATE: 20200519
